FAERS Safety Report 20775671 (Version 4)
Quarter: 2022Q3

REPORT INFORMATION
  Report Type: Spontaneous
  Country: US (occurrence: US)
  Receive Date: 20220502
  Receipt Date: 20220829
  Transmission Date: 20221027
  Serious: Yes (Hospitalization)
  Sender: FDA-Public Use
  Company Number: US-KYOWAKIRIN-2022BKK006543

PATIENT

DRUGS (5)
  1. CRYSVITA [Suspect]
     Active Substance: BUROSUMAB-TWZA
     Indication: Hereditary hypophosphataemic rickets
     Dosage: 70 MG 1X/4 WEEKS
     Route: 058
     Dates: start: 20190517
  2. CRYSVITA [Suspect]
     Active Substance: BUROSUMAB-TWZA
     Dosage: 60 MG, 1X/4 WEEKSTWO 30 MG VIALS EVERY FOUR WEEKS FOR A TOTAL DOSE OF 80 MG
     Route: 058
     Dates: start: 202102
  3. CRYSVITA [Suspect]
     Active Substance: BUROSUMAB-TWZA
     Indication: Hereditary hypophosphataemic rickets
     Dosage: 70 MG, 1X/4 WEEKS
     Route: 058
     Dates: start: 20190517
  4. CRYSVITA [Suspect]
     Active Substance: BUROSUMAB-TWZA
     Indication: Hereditary hypophosphataemic rickets
     Dosage: 60 MG, 1X/MONTH
     Route: 065
     Dates: start: 20190527
  5. CRYSVITA [Suspect]
     Active Substance: BUROSUMAB-TWZA
     Indication: Hereditary hypophosphataemic rickets
     Dosage: 20 MG, 1X/4 WEEKS INJECT 20 MG (1 VIAL) EVERY FOUR WEEKS FOR A TOTAL DOSE OF 80 MG
     Route: 058
     Dates: start: 202102

REACTIONS (5)
  - Groin infection [Unknown]
  - Spinal disorder [Unknown]
  - Infection [Not Recovered/Not Resolved]
  - Abscess neck [Unknown]
  - Drug ineffective [Unknown]
